FAERS Safety Report 17013145 (Version 1)
Quarter: 2019Q4

REPORT INFORMATION
  Report Type: Spontaneous
  Country: US (occurrence: US)
  Receive Date: 20191002
  Receipt Date: 20191002
  Transmission Date: 20200122
  Serious: No
  Sender: FDA-Public Use
  Company Number: None

PATIENT
  Age: 15 Year
  Sex: Male

DRUGS (2)
  1. PHENOL. [Suspect]
     Active Substance: PHENOL
  2. COLLODION [Suspect]
     Active Substance: COLLODION

REACTIONS (5)
  - Wrong product administered [None]
  - Application site pallor [None]
  - Product appearance confusion [None]
  - Product label confusion [None]
  - Product dispensing error [None]
